FAERS Safety Report 7427614-9 (Version None)
Quarter: 2011Q2

REPORT INFORMATION
  Report Type: 
  Country: None (occurrence: None)
  Receive Date: 20110420
  Receipt Date: 20110414
  Transmission Date: 20111010
  Serious: Yes (Other)
  Sender: FDA-Public Use
  Company Number: US-BRISTOL-MYERS SQUIBB COMPANY-15193931

PATIENT
  Age: 4 Decade
  Sex: Male

DRUGS (5)
  1. ONGLYZA [Suspect]
     Dosage: 2 DOSES TAKEN ON 13 + 14 JUL10
     Dates: start: 20100713
  2. METFORMIN HCL [Concomitant]
  3. ASPIRIN [Concomitant]
  4. LIPITOR [Concomitant]
  5. BENICAR [Concomitant]

REACTIONS (1)
  - STEVENS-JOHNSON SYNDROME [None]
